FAERS Safety Report 10912222 (Version 1)
Quarter: 2015Q1

REPORT INFORMATION
  Report Type: Spontaneous
  Country: JP (occurrence: JP)
  Receive Date: 20150313
  Receipt Date: 20150313
  Transmission Date: 20150721
  Serious: Yes (Death, Other)
  Sender: FDA-Public Use
  Company Number: JP-ELI_LILLY_AND_COMPANY-JP201503002594

PATIENT
  Age: 75 Year
  Sex: Male

DRUGS (3)
  1. DOCETAXEL. [Concomitant]
     Active Substance: DOCETAXEL
     Indication: MALIGNANT NEOPLASM OF RENAL PELVIS
     Dosage: UNK
     Dates: start: 20121003
  2. GEMZAR [Suspect]
     Active Substance: GEMCITABINE HYDROCHLORIDE
     Indication: MALIGNANT NEOPLASM OF RENAL PELVIS
     Dosage: UNK
     Route: 042
     Dates: start: 20121003
  3. CARBOPLATIN. [Concomitant]
     Active Substance: CARBOPLATIN
     Indication: MALIGNANT NEOPLASM OF RENAL PELVIS
     Dosage: UNK
     Dates: start: 20121003

REACTIONS (5)
  - White blood cell count decreased [Unknown]
  - Septic shock [Fatal]
  - Necrotising colitis [Fatal]
  - Neutrophil count decreased [Unknown]
  - Disseminated intravascular coagulation [Unknown]

NARRATIVE: CASE EVENT DATE: 20121009
